FAERS Safety Report 22169379 (Version 2)
Quarter: 2024Q2

REPORT INFORMATION
  Report Type: Spontaneous
  Country: TR (occurrence: TR)
  Receive Date: 20230404
  Receipt Date: 20240402
  Transmission Date: 20240716
  Serious: Yes (Hospitalization, Other)
  Sender: FDA-Public Use
  Company Number: TR-ALKEM LABORATORIES LIMITED-TR-ALKEM-2022-13259

PATIENT
  Age: 4 Year
  Sex: Female

DRUGS (1)
  1. COLCHICINE [Suspect]
     Active Substance: COLCHICINE
     Indication: Product used for unknown indication
     Dosage: 45-48 MILLIGRAM (MG) (1.3-1.5 MG/KG)
     Route: 048

REACTIONS (9)
  - Toxicity to various agents [Recovering/Resolving]
  - Accidental exposure to product by child [Unknown]
  - Accidental overdose [Unknown]
  - Pancytopenia [Unknown]
  - Abdominal pain [Unknown]
  - Diarrhoea [Unknown]
  - Vomiting [Unknown]
  - Alopecia [Unknown]
  - Toxicity to various agents [Unknown]
